FAERS Safety Report 12578610 (Version 1)
Quarter: 2016Q3

REPORT INFORMATION
  Report Type: Spontaneous
  Country: US (occurrence: None)
  Receive Date: 20160720
  Receipt Date: 20160720
  Transmission Date: 20161109
  Serious: Yes (Hospitalization)
  Sender: FDA-Public Use
  Company Number: None

PATIENT
  Age: 21 Year
  Sex: Female
  Weight: 51.7 kg

DRUGS (10)
  1. PANTOPRAZOLE [Concomitant]
     Active Substance: PANTOPRAZOLE SODIUM
  2. LINEZOLID, 600 MG [Suspect]
     Active Substance: LINEZOLID
     Indication: PATHOGEN RESISTANCE
     Route: 042
     Dates: start: 20160415, end: 20160630
  3. ONDANSETRON [Concomitant]
     Active Substance: ONDANSETRON
  4. LINEZOLID, 600 MG [Suspect]
     Active Substance: LINEZOLID
     Indication: PULMONARY TUBERCULOSIS
     Route: 042
     Dates: start: 20160415, end: 20160630
  5. RIFABUTIN. [Concomitant]
     Active Substance: RIFABUTIN
  6. PYRANZINAMIDE [Concomitant]
  7. PYRIDOXINE [Concomitant]
     Active Substance: PYRIDOXINE
  8. MOXIFLOXACIN. [Concomitant]
     Active Substance: MOXIFLOXACIN
  9. LAMPRENE [Concomitant]
     Active Substance: CLOFAZIMINE
  10. AMIKACIN [Concomitant]
     Active Substance: AMIKACIN

REACTIONS (4)
  - Optic disc disorder [None]
  - Strabismus [None]
  - Papilloedema [None]
  - Eye haemorrhage [None]

NARRATIVE: CASE EVENT DATE: 20160629
